FAERS Safety Report 8842312 (Version 2)
Quarter: 2012Q4

REPORT INFORMATION
  Report Type: Report from Study
  Country: JP (occurrence: JP)
  Receive Date: 20121016
  Receipt Date: 20121025
  Transmission Date: 20130627
  Serious: Yes (Death, Other)
  Sender: FDA-Public Use
  Company Number: JP-OTSUKA-JP-2012-16316

PATIENT
  Age: 69 Year
  Sex: Male
  Weight: 48 kg

DRUGS (20)
  1. SAMSCA [Suspect]
     Indication: FLUID RETENTION
     Dosage: 7.5 Mg milligram(s), qam
     Route: 048
     Dates: start: 20120821, end: 20120822
  2. BFLUID [Concomitant]
     Dosage: 500 ml millilitre(s), daily dose
     Route: 042
     Dates: end: 20120821
  3. ARTIST [Concomitant]
     Indication: CARDIAC FAILURE
     Dosage: 1.25 Mg milligram(s), daily dose
     Route: 048
     Dates: end: 20120822
  4. ANCARON [Concomitant]
     Dosage: 75 Mg milligram(s), daily dose
     Route: 048
     Dates: end: 20120822
  5. SELARA [Concomitant]
     Dosage: 25 Mg milligram(s), daily dose
     Route: 048
     Dates: end: 20120822
  6. LUPRAC [Concomitant]
     Indication: CARDIAC FAILURE
     Dosage: 8 Mg milligram(s), daily dose
     Route: 048
     Dates: end: 20120822
  7. NIKORANMART [Concomitant]
     Indication: CARDIAC FAILURE
     Dosage: 15 Mg milligram(s), daily dose
     Route: 048
     Dates: end: 20120822
  8. HALFDIGOXIN [Concomitant]
     Dosage: 62.4 mcg, daily dose
     Route: 048
     Dates: end: 20120822
  9. CRESTOR [Concomitant]
     Dosage: 2.5 Mg milligram(s), daily dose
     Route: 048
     Dates: end: 20120822
  10. JANUVIA [Concomitant]
     Dosage: 50 Mg milligram(s), daily dose
     Route: 048
     Dates: end: 20120822
  11. NEXIUM [Concomitant]
     Dosage: 20 Mg milligram(s), daily dose
     Route: 048
     Dates: end: 20120822
  12. FEROTYM [Concomitant]
     Dosage: 50 Mg milligram(s), daily dose
     Route: 048
     Dates: end: 20120822
  13. PRAZAXA [Concomitant]
     Dosage: 220 Mg milligram(s), daily dose
     Route: 048
     Dates: end: 20120822
  14. BAYASPIRIN [Concomitant]
     Dosage: 100 Mg milligram(s), daily dose
     Route: 048
     Dates: end: 20120822
  15. MYOCOR [Concomitant]
     Dosage: UNK UNK, qd
     Route: 060
     Dates: end: 20120822
  16. GENINAX [Concomitant]
     Dosage: 200 Mg milligram(s), daily dose
     Route: 048
     Dates: end: 20120822
  17. FEBURIC [Concomitant]
     Dosage: 10 Mg milligram(s), daily dose
     Route: 048
     Dates: end: 20120822
  18. AZUNOL [Concomitant]
     Dosage: UNK UNK, tid
     Route: 062
     Dates: end: 20120822
  19. FESIN [Concomitant]
     Dosage: 1 DF dosage form, daily dose
     Route: 042
     Dates: start: 20120822, end: 20120822
  20. PRIMPERAN [Concomitant]
     Dosage: 1 DF dosage form, daily dose
     Route: 042
     Dates: start: 20120822, end: 20120822

REACTIONS (2)
  - Death [Fatal]
  - Blood pressure decreased [Unknown]
